FAERS Safety Report 14382948 (Version 1)
Quarter: 2018Q1

REPORT INFORMATION
  Report Type: Report from Study
  Country: IT (occurrence: IT)
  Receive Date: 20180114
  Receipt Date: 20180114
  Transmission Date: 20180509
  Serious: Yes (Other)
  Sender: FDA-Public Use
  Company Number: IT-TEVA-2018-IT-843677

PATIENT
  Age: 72 Year
  Sex: Female

DRUGS (1)
  1. ALLOPURINOL. [Suspect]
     Active Substance: ALLOPURINOL
     Route: 065

REACTIONS (10)
  - Conjunctivitis [Recovered/Resolved]
  - Madarosis [Recovered/Resolved]
  - Corneal thinning [Unknown]
  - Corneal scar [Unknown]
  - Conjunctival hyperaemia [Recovered/Resolved]
  - Trichiasis [Unknown]
  - Ulcerative keratitis [Recovered/Resolved]
  - Corneal opacity [Unknown]
  - Toxic epidermal necrolysis [Unknown]
  - Meibomian gland dysfunction [Unknown]
